FAERS Safety Report 8773606 (Version 2)
Quarter: 2012Q4

REPORT INFORMATION
  Report Type: 
  Country: AR (occurrence: AR)
  Receive Date: 20120907
  Receipt Date: 20121218
  Transmission Date: 20130627
  Serious: Yes (Other)
  Sender: FDA-Public Use
  Company Number: PHHY2012AR048497

PATIENT
  Sex: Female

DRUGS (1)
  1. TASIGNA [Suspect]
     Indication: CHRONIC MYELOID LEUKAEMIA
     Dosage: 800 mg, daily
     Route: 048
     Dates: start: 2009

REACTIONS (4)
  - Infection [Recovering/Resolving]
  - Gallbladder pain [Unknown]
  - Therapeutic response decreased [Not Recovered/Not Resolved]
  - Anaemia [Unknown]
